FAERS Safety Report 15936919 (Version 1)
Quarter: 2019Q1

REPORT INFORMATION
  Report Type: Spontaneous
  Country: US (occurrence: US)
  Receive Date: 20190208
  Receipt Date: 20190208
  Transmission Date: 20190417
  Serious: No
  Sender: FDA-Public Use
  Company Number: US-ICU MEDICAL, INC.-ICU2018US00027

PATIENT

DRUGS (2)
  1. 0.9% SODIUM CHLORIDE IRRIGATION USP (1000 ML) BAG [Suspect]
     Active Substance: SODIUM CHLORIDE
     Indication: DEHYDRATION
     Dosage: 18 MILLILITER
     Route: 042
     Dates: start: 20180815, end: 20180815
  2. 0.9% SODIUM CHLORIDE IRRIGATION USP (1000 ML) BAG [Suspect]
     Active Substance: SODIUM CHLORIDE
     Indication: MIGRAINE

REACTIONS (2)
  - Incorrect route of product administration [Unknown]
  - No adverse event [Unknown]

NARRATIVE: CASE EVENT DATE: 20180815
